FAERS Safety Report 25010219 (Version 1)
Quarter: 2025Q1

REPORT INFORMATION
  Report Type: Other
  Country: CN (occurrence: None)
  Receive Date: 20250225
  Receipt Date: 20250225
  Transmission Date: 20250408
  Serious: Yes (Hospitalization, Disabling)
  Sender: INCYTE
  Company Number: CN-002147023-NVSC2025CN029388

PATIENT
  Age: 82 Year

DRUGS (2)
  1. RUXOLITINIB [Suspect]
     Active Substance: RUXOLITINIB
     Indication: Myelofibrosis
     Dosage: 5 MG, BID
  2. FOLIC ACID [Concomitant]
     Active Substance: FOLIC ACID
     Indication: Myelofibrosis
     Dosage: 5 MG, QD

REACTIONS (3)
  - Coagulopathy [Unknown]
  - Gastrointestinal haemorrhage [Unknown]
  - Platelet count decreased [Unknown]
